FAERS Safety Report 19394136 (Version 2)
Quarter: 2021Q3

REPORT INFORMATION
  Report Type: Spontaneous
  Country: DE (occurrence: DE)
  Receive Date: 20210609
  Receipt Date: 20210813
  Transmission Date: 20211014
  Serious: Yes (Other)
  Sender: FDA-Public Use
  Company Number: NVSC2021DE127969

PATIENT
  Age: 71 Year
  Sex: Female

DRUGS (7)
  1. RITUXIMAB. [Suspect]
     Active Substance: RITUXIMAB
     Indication: DIFFUSE LARGE B-CELL LYMPHOMA
     Dosage: 375 MG/M2, CYCLIC (DAY 0,1) 4 CYCLES
     Route: 042
  2. PREDNISONE. [Suspect]
     Active Substance: PREDNISONE
     Indication: DIFFUSE LARGE B-CELL LYMPHOMA
     Dosage: 100 MG, CYCLIC ABS (DAYS 1?5) 4 CYCLES
     Route: 042
  3. CYCLOPHOSPHAMIDE. [Suspect]
     Active Substance: CYCLOPHOSPHAMIDE
     Indication: DIFFUSE LARGE B-CELL LYMPHOMA
     Dosage: 750 MG/M2, CYCLIC (DAY 1) 4 CYCLES
     Route: 042
  4. DOXORUBICIN [Suspect]
     Active Substance: DOXORUBICIN
     Indication: DIFFUSE LARGE B-CELL LYMPHOMA
     Dosage: 50 MG/M2, CYCLIC (DAY 1) 4 CYCLES
     Route: 042
  5. VINCRISTINE [Suspect]
     Active Substance: VINCRISTINE
     Indication: DIFFUSE LARGE B-CELL LYMPHOMA
     Dosage: 2/1 MG, CYCLIC ABS (DAY 1) 4 CYCLES
     Route: 042
  6. METHOTREXATE. [Suspect]
     Active Substance: METHOTREXATE
     Indication: DIFFUSE LARGE B-CELL LYMPHOMA
     Dosage: 4 G/M2, CYCLIC (DAY 1), 4 CYCLES
     Route: 042
  7. RITUXIMAB. [Suspect]
     Active Substance: RITUXIMAB
     Dosage: 1400 MG, CYCLIC  ABS 4 CYCLES (DAY 0,1)
     Route: 058

REACTIONS (2)
  - Haematotoxicity [Unknown]
  - Therapy partial responder [Unknown]
